FAERS Safety Report 10203560 (Version 1)
Quarter: 2014Q2

REPORT INFORMATION
  Report Type: Report from Study
  Country: MX (occurrence: MX)
  Receive Date: 20140529
  Receipt Date: 20140529
  Transmission Date: 20141212
  Serious: Yes (Death, Hospitalization, Other)
  Sender: FDA-Public Use
  Company Number: MX-JNJFOC-20140516806

PATIENT
  Age: 60 Year
  Sex: Female
  Weight: 56 kg

DRUGS (3)
  1. XARELTO [Suspect]
     Indication: EMBOLISM VENOUS
     Route: 048
     Dates: start: 201310, end: 201405
  2. XARELTO [Suspect]
     Indication: DEEP VEIN THROMBOSIS
     Route: 048
     Dates: start: 201310, end: 201405
  3. VALSARTAN [Suspect]
     Indication: HYPERTENSION
     Route: 048
     Dates: start: 200001, end: 201405

REACTIONS (10)
  - Cardio-respiratory arrest [Fatal]
  - Tachypnoea [Not Recovered/Not Resolved]
  - Cyanosis [Not Recovered/Not Resolved]
  - Urinary casts [Not Recovered/Not Resolved]
  - Dyspnoea [Unknown]
  - Gastrointestinal haemorrhage [Unknown]
  - Pneumothorax [Unknown]
  - Sepsis [Unknown]
  - Empyema [Unknown]
  - Anaemia [Unknown]
